FAERS Safety Report 12597538 (Version 1)
Quarter: 2016Q3

REPORT INFORMATION
  Report Type: Spontaneous
  Country: US (occurrence: None)
  Receive Date: 20160726
  Receipt Date: 20160726
  Transmission Date: 20161109
  Serious: Yes (Disabling)
  Sender: FDA-Public Use
  Company Number: None

PATIENT
  Age: 46 Year
  Sex: Female
  Weight: 79.38 kg

DRUGS (9)
  1. ZYRTEC [Concomitant]
     Active Substance: CETIRIZINE HYDROCHLORIDE
  2. OCCASIONAL DECONGESTANT [Concomitant]
  3. NASAL SPRAYS [Concomitant]
  4. TOPICAL PAIN RUB FOR ARTHRITIS [Concomitant]
  5. LIPITOR GENERIC [Suspect]
     Active Substance: ATORVASTATIN CALCIUM
     Indication: LOW DENSITY LIPOPROTEIN INCREASED
     Route: 048
     Dates: start: 20160601, end: 20160625
  6. IBUPROFEN. [Concomitant]
     Active Substance: IBUPROFEN
  7. EFFEXOR [Concomitant]
     Active Substance: VENLAFAXINE HYDROCHLORIDE
  8. LEVOTHROID [Concomitant]
     Active Substance: LEVOTHYROXINE SODIUM
  9. VITAMIN D [Concomitant]
     Active Substance: CHOLECALCIFEROL

REACTIONS (5)
  - Condition aggravated [None]
  - Feeling abnormal [None]
  - Impaired work ability [None]
  - Depression [None]
  - Blood glucose increased [None]

NARRATIVE: CASE EVENT DATE: 20060601
